FAERS Safety Report 5328416-X (Version None)
Quarter: 2007Q2

REPORT INFORMATION
  Report Type: 
  Country: None (occurrence: None)
  Receive Date: 20070515
  Receipt Date: 20070515
  Transmission Date: 20071010
  Serious: No
  Sender: FDA-Public Use
  Company Number: None

PATIENT
  Age: 24 Year
  Sex: Female
  Weight: 63.5036 kg

DRUGS (1)
  1. TOPAMAX [Suspect]
     Indication: MIGRAINE PROPHYLAXIS
     Dosage: 200MG MORNING
     Dates: start: 20051022, end: 20070126

REACTIONS (7)
  - AMNESIA [None]
  - DEPRESSION [None]
  - EATING DISORDER [None]
  - EDUCATIONAL PROBLEM [None]
  - IMPAIRED WORK ABILITY [None]
  - TREMOR [None]
  - WEIGHT DECREASED [None]
